FAERS Safety Report 10128550 (Version 1)
Quarter: 2014Q2

REPORT INFORMATION
  Report Type: Report from Study
  Country: FR (occurrence: FR)
  Receive Date: 20140428
  Receipt Date: 20140428
  Transmission Date: 20141212
  Serious: Yes (Hospitalization)
  Sender: FDA-Public Use
  Company Number: FR-ROCHE-1386741

PATIENT
  Age: 60 Year
  Sex: Male

DRUGS (2)
  1. BEVACIZUMAB [Suspect]
     Indication: LUNG NEOPLASM MALIGNANT
     Dosage: LAST INJECTION BEFORE THE ADVERSE EVENT WAS RECEIVED ON 08/OCT/2013.
     Route: 065
     Dates: start: 20130909, end: 20131008
  2. PACLITAXEL [Suspect]
     Indication: LUNG NEOPLASM MALIGNANT
     Dosage: LAST INJECTION BEFORE THE ADVERSE EVENT WAS RECEIVED ON 08/OCT/2013.
     Route: 065
     Dates: start: 20130909, end: 20131008

REACTIONS (2)
  - Pneumothorax [Not Recovered/Not Resolved]
  - Pleurisy [Not Recovered/Not Resolved]
